FAERS Safety Report 6270955-1 (Version None)
Quarter: 2009Q3

REPORT INFORMATION
  Report Type: 
  Country: None (occurrence: None)
  Receive Date: 20090715
  Receipt Date: 20090708
  Transmission Date: 20100115
  Serious: Yes (Disabling, Other)
  Sender: FDA-Public Use
  Company Number: 2009SP015011

PATIENT
  Sex: Male

DRUGS (3)
  1. NASONEX [Suspect]
     Indication: HYPERSENSITIVITY
     Dosage: NAS
     Route: 045
  2. NASONEX [Suspect]
     Indication: SINUS DISORDER
     Dosage: NAS
     Route: 045
  3. NEXIUM [Concomitant]

REACTIONS (1)
  - ROAD TRAFFIC ACCIDENT [None]
